FAERS Safety Report 16959011 (Version 1)
Quarter: 2019Q4

REPORT INFORMATION
  Report Type: Spontaneous
  Country: CR (occurrence: CR)
  Receive Date: 20191024
  Receipt Date: 20191024
  Transmission Date: 20200122
  Serious: Yes (Hospitalization, Other)
  Sender: FDA-Public Use
  Company Number: CR-009507513-1910CRI014306

PATIENT
  Age: 75 Year
  Sex: Male

DRUGS (1)
  1. INVANZ [Suspect]
     Active Substance: ERTAPENEM SODIUM
     Indication: PROSTATITIS
     Dosage: 1 GRAM PER DAY
     Dates: start: 2019

REACTIONS (2)
  - Product use in unapproved indication [Unknown]
  - Cerebral small vessel ischaemic disease [Recovered/Resolved]

NARRATIVE: CASE EVENT DATE: 2019
